FAERS Safety Report 9365626 (Version 1)
Quarter: 2013Q2

REPORT INFORMATION
  Report Type: Spontaneous
  Country: US (occurrence: None)
  Receive Date: 20130624
  Receipt Date: 20130624
  Transmission Date: 20140414
  Serious: No
  Sender: FDA-Public Use
  Company Number: None

PATIENT
  Age: 50 Year
  Sex: Female

DRUGS (8)
  1. REVLIMID [Suspect]
     Indication: PLASMA CELL MYELOMA
     Dosage: 15 MG DAILY X 14/21 DAYS BY MOUTH
     Dates: start: 201304, end: 201305
  2. DEXAMETHASONE [Concomitant]
  3. ACYCLOVIR [Concomitant]
  4. OMEPRAZOLE [Concomitant]
  5. CYCLOBENZAPRINE [Concomitant]
  6. PROCHLORPERAZINE [Concomitant]
  7. NABUMETONE [Concomitant]
  8. MORPHINE [Concomitant]

REACTIONS (1)
  - Rash [None]
